FAERS Safety Report 8903200 (Version 1)
Quarter: 2012Q4

REPORT INFORMATION
  Report Type: 
  Country: GR (occurrence: GR)
  Receive Date: 20121112
  Receipt Date: 20121112
  Transmission Date: 20130627
  Serious: Yes (Hospitalization, Other)
  Sender: FDA-Public Use
  Company Number: GR-BIOGENIDEC-2012BI050711

PATIENT
  Age: 49 Year
  Sex: Male
  Weight: 80 kg

DRUGS (3)
  1. TYSABRI [Suspect]
     Indication: MULTIPLE SCLEROSIS
     Route: 042
     Dates: start: 20120313, end: 20120830
  2. TYSABRI [Suspect]
     Indication: MULTIPLE SCLEROSIS
  3. SINTROM [Concomitant]
     Route: 048

REACTIONS (1)
  - Deep vein thrombosis [Recovered/Resolved]
